FAERS Safety Report 19682296 (Version 1)
Quarter: 2021Q3

REPORT INFORMATION
  Report Type: Spontaneous
  Country: US (occurrence: US)
  Receive Date: 20210810
  Receipt Date: 20210810
  Transmission Date: 20211014
  Serious: Yes (Hospitalization)
  Sender: FDA-Public Use
  Company Number: US-BAUSCH-BL-2021-027038

PATIENT
  Age: 95 Year
  Sex: Female

DRUGS (2)
  1. XIFAXAN [Suspect]
     Active Substance: RIFAXIMIN
     Indication: DIARRHOEA INFECTIOUS
     Route: 048
     Dates: start: 20210720
  2. XIFAXAN [Suspect]
     Active Substance: RIFAXIMIN
     Indication: HEPATIC ENCEPHALOPATHY
     Dosage: STARTED APPROXIMATELY 2 YEARS AGO
     Route: 048
     Dates: start: 2019, end: 20210617

REACTIONS (4)
  - Ammonia increased [Not Recovered/Not Resolved]
  - Living in residential institution [Unknown]
  - Therapy interrupted [Unknown]
  - Wrong technique in product usage process [Unknown]

NARRATIVE: CASE EVENT DATE: 202106
